FAERS Safety Report 20548844 (Version 2)
Quarter: 2022Q1

REPORT INFORMATION
  Report Type: Spontaneous
  Country: US (occurrence: US)
  Receive Date: 20220303
  Receipt Date: 20220305
  Transmission Date: 20220423
  Serious: Yes (Hospitalization, Other)
  Sender: FDA-Public Use
  Company Number: US-NOVARTISPH-NVSC2022US043580

PATIENT
  Sex: Male

DRUGS (2)
  1. ENTRESTO [Suspect]
     Active Substance: SACUBITRIL\VALSARTAN
     Indication: Product used for unknown indication
     Dosage: 200 MG ((97/103 MG: SACUBITRIL 97.2 MG, VALSARTAN 102.8 MG)
     Route: 065
     Dates: start: 20220221
  2. ENALAPRIL MALEATE [Suspect]
     Active Substance: ENALAPRIL MALEATE
     Indication: Product used for unknown indication
     Dosage: 10 MG
     Route: 065
     Dates: start: 20220221

REACTIONS (4)
  - Dyspnoea [Unknown]
  - Cardiomyopathy [Unknown]
  - Oxygen saturation decreased [Unknown]
  - Contraindicated product administered [Unknown]
